FAERS Safety Report 15928998 (Version 1)
Quarter: 2019Q1

REPORT INFORMATION
  Report Type: Spontaneous
  Country: NL (occurrence: NL)
  Receive Date: 20190206
  Receipt Date: 20190206
  Transmission Date: 20190417
  Serious: Yes (Other)
  Sender: FDA-Public Use
  Company Number: NL-MYLANLABS-2019M1010410

PATIENT
  Age: 26 Year
  Sex: Male
  Weight: 79 kg

DRUGS (7)
  1. COLESTYRAMINE [Concomitant]
     Active Substance: CHOLESTYRAMINE
     Dosage: 4 GRAM, BID (2DD1)
     Dates: start: 20170125
  2. ESCITALOPRAM [Interacting]
     Active Substance: ESCITALOPRAM OXALATE
     Indication: DEPRESSION
     Dosage: 10 MILLIGRAM, QD (1 KEER PER DAG 1 TABLET)
     Route: 048
     Dates: start: 20180713
  3. IMODIUM [Concomitant]
     Active Substance: LOPERAMIDE HYDROCHLORIDE
     Dosage: 2 MILLIGRAM, QD (1DD1)
  4. OXAZEPAM. [Concomitant]
     Active Substance: OXAZEPAM
     Dosage: 10 MILLIGRAM (ZO NODIG 1 KEER PER DAG 1 TABLET)
     Dates: start: 20180713
  5. PSYLLIUMVEZELS [Concomitant]
     Dosage: 2 KEER PER DAG ZO NODIG 1 ZAKJE
     Dates: start: 20140711
  6. SUMATRIPTAN. [Suspect]
     Active Substance: SUMATRIPTAN
     Indication: MIGRAINE
     Dosage: BIJ MIGRAINE 1 TABLET, HERHAAL ZO NODIG 2 KEER PER DAG, WACHT MEER DAN 2 UUR NA DE VORIGE TABLET.
     Route: 048
     Dates: start: 20160330
  7. LOPERAMIDE [Concomitant]
     Active Substance: LOPERAMIDE
     Dosage: 2 MILLIGRAM (ZO NODIG 6 KEER PER DAG 1 CAPSULE)
     Dates: start: 20140909

REACTIONS (8)
  - Hyperhidrosis [Recovered/Resolved]
  - Dyskinesia [Recovered/Resolved]
  - Serotonin syndrome [Recovered/Resolved]
  - Musculoskeletal stiffness [Recovered/Resolved]
  - Muscle tightness [Recovered/Resolved]
  - Myalgia [Recovered/Resolved]
  - Anxiety [Recovered/Resolved]
  - Drug interaction [Recovered/Resolved]

NARRATIVE: CASE EVENT DATE: 20180719
